FAERS Safety Report 4274221-5 (Version None)
Quarter: 2004Q1

REPORT INFORMATION
  Report Type: 
  Country: None (occurrence: None)
  Receive Date: 20040115
  Receipt Date: 20040108
  Transmission Date: 20041129
  Serious: Yes (Life-Threatening, Other)
  Sender: FDA-Public Use
  Company Number: 2003186498CA

PATIENT
  Age: 50 Year
  Sex: Female
  Weight: 59 kg

DRUGS (11)
  1. EPIRUBICIN [Suspect]
     Indication: BREAST CANCER FEMALE
     Dosage: 95 MG, CYCLE 6 DL, + D 8, Q4 WKS, IV
     Route: 042
     Dates: start: 20030407, end: 20031014
  2. ADRUCIL [Suspect]
     Indication: BREAST CANCER FEMALE
     Dosage: 800 MG, CYCLE 6, DL + D 8, Q4WKS, IV
     Route: 042
     Dates: start: 20030407, end: 20031014
  3. CYCLOPHOSPHAMIDE [Suspect]
     Indication: BREAST CANCER FEMALE
     Dosage: 125 MG, CYCLE 6, DL 4 Q 4 WKS, ORAL
     Route: 048
     Dates: start: 20030407, end: 20031014
  4. SULFAMETHOXAZOLE + TRIMETHOPRIM [Suspect]
     Dosage: 800 MG, BID, D 10-20 Q, 4 WKS, ORAL
     Route: 048
  5. ZOFRAN [Suspect]
     Dosage: 8 MG, TID, D 1-8, Q4 WKS, ORAL
     Route: 048
  6. DEXAMETHASONE [Suspect]
     Dosage: 10 MG, QD, D L + D 8, Q 4 WKS, IV
     Route: 042
  7. BROMAZEPAM [Concomitant]
  8. NEXIUM [Concomitant]
  9. TRAZODONE HCL [Concomitant]
  10. VITAMIN E [Concomitant]
  11. VENLAFAXINE HCL [Concomitant]

REACTIONS (9)
  - ARRHYTHMIA [None]
  - ATRIAL FIBRILLATION [None]
  - CARDIAC FAILURE [None]
  - CONGESTIVE CARDIOMYOPATHY [None]
  - GASTROOESOPHAGEAL REFLUX DISEASE [None]
  - HYPOKINESIA [None]
  - MITRAL VALVE INCOMPETENCE [None]
  - TRICUSPID VALVE INCOMPETENCE [None]
  - VENTRICULAR TACHYCARDIA [None]
